FAERS Safety Report 13563814 (Version 1)
Quarter: 2017Q2

REPORT INFORMATION
  Report Type: Spontaneous
  Country: US (occurrence: US)
  Receive Date: 20170519
  Receipt Date: 20170519
  Transmission Date: 20170830
  Serious: No
  Sender: FDA-Public Use
  Company Number: US-VERTEX PHARMACEUTICALS-2017-002665

PATIENT
  Sex: Male

DRUGS (12)
  1. MEPHYTON [Concomitant]
     Active Substance: PHYTONADIONE
  2. PANCREASE MT [Concomitant]
     Active Substance: PANCRELIPASE
  3. ADVAIR HFA [Concomitant]
     Active Substance: FLUTICASONE PROPIONATE\SALMETEROL XINAFOATE
  4. NOVOLOG [Concomitant]
     Active Substance: INSULIN ASPART
  5. TESTOSTERONE. [Concomitant]
     Active Substance: TESTOSTERONE
  6. AZITHROMYCIN ANHYDROUS. [Concomitant]
     Active Substance: AZITHROMYCIN ANHYDROUS
  7. HYPERTONIC SALINE SOLUTION [Concomitant]
     Active Substance: SODIUM CHLORIDE
  8. COLOMYCIN [Concomitant]
     Active Substance: COLISTIN
  9. TOBRAMYCIN. [Concomitant]
     Active Substance: TOBRAMYCIN
  10. ORKAMBI [Suspect]
     Active Substance: IVACAFTOR\LUMACAFTOR
     Indication: CYSTIC FIBROSIS
     Dosage: 2 TABLETS (200 MG/125 EACH), BID
     Route: 048
     Dates: start: 20150801
  11. CAYSTON [Concomitant]
     Active Substance: AZTREONAM
  12. ALBUTEROL. [Concomitant]
     Active Substance: ALBUTEROL

REACTIONS (1)
  - Hyperhidrosis [Not Recovered/Not Resolved]

NARRATIVE: CASE EVENT DATE: 2016
